FAERS Safety Report 15242095 (Version 2)
Quarter: 2018Q3

REPORT INFORMATION
  Report Type: Other
  Country: FR (occurrence: FR)
  Receive Date: 20180806
  Receipt Date: 20180821
  Transmission Date: 20181010
  Serious: Yes (Hospitalization, Other)
  Sender: FDA-Public Use
  Company Number: FR-ALEXION PHARMACEUTICALS INC.-A201809694

PATIENT
  Age: 19 Year
  Sex: Male

DRUGS (12)
  1. SOLIRIS [Suspect]
     Active Substance: ECULIZUMAB
     Indication: OFF LABEL USE
     Dosage: 900 MG, FOR 4 WEEKS
     Route: 042
     Dates: start: 20180209, end: 20180607
  2. VISMED [Concomitant]
     Active Substance: HYALURONATE SODIUM
     Indication: PRODUCT USED FOR UNKNOWN INDICATION
     Dosage: UNK
     Route: 047
     Dates: start: 20180607
  3. PARACETAMOL [Concomitant]
     Active Substance: ACETAMINOPHEN
     Indication: PRODUCT USED FOR UNKNOWN INDICATION
     Dosage: 1 G, 4 TIMES A DAY
     Route: 054
  4. DACUDOSES [Concomitant]
     Active Substance: BORIC ACID\SODIUM BORATE
     Indication: PRODUCT USED FOR UNKNOWN INDICATION
     Dosage: UNK
     Route: 047
     Dates: start: 20180607
  5. SOLIRIS [Suspect]
     Active Substance: ECULIZUMAB
     Indication: C3 GLOMERULOPATHY
     Dosage: UNK
     Route: 065
     Dates: end: 2014
  6. ORACILLINE                         /00001801/ [Concomitant]
     Active Substance: PENICILLIN V
     Indication: PROPHYLAXIS
     Dosage: 1 000 000 U.I./10 ML, 2 DF, QD
     Route: 048
     Dates: start: 20180209, end: 20180613
  7. SOLIRIS [Suspect]
     Active Substance: ECULIZUMAB
     Dosage: 1.5 G, EVERY 15 DAYS
     Route: 065
  8. NIMENRIX [Suspect]
     Active Substance: CLOSTRIDIUM TETANI TOXOID ANTIGEN (FORMALDEHYDE INACTIVATED)\MENINGOCOCCAL POLYSACCHARIDE VACCINE, GROUPS A, C, Y,W135 COMBINED
     Indication: MENINGOCOCCAL INFECTION
     Dosage: UNK
     Route: 030
     Dates: start: 20130117
  9. BEXSERO [Suspect]
     Active Substance: MENINGOCOCCAL GROUP B VACCINE
     Indication: MENINGOCOCCAL INFECTION
     Dosage: UNK
     Route: 030
     Dates: start: 20180208
  10. COZAAR [Concomitant]
     Active Substance: LOSARTAN POTASSIUM
     Indication: PRODUCT USED FOR UNKNOWN INDICATION
     Dosage: 50 MG, 0.5 DF, QD
     Route: 048
  11. RENITEC                            /00574902/ [Concomitant]
     Active Substance: ENALAPRIL MALEATE
     Indication: PRODUCT USED FOR UNKNOWN INDICATION
     Dosage: 20 MG, 1 DF, QD
     Route: 048
  12. SOLIRIS [Suspect]
     Active Substance: ECULIZUMAB
     Dosage: 1.8 G,EVERY 15 DAYS
     Route: 065
     Dates: start: 20180209, end: 20180607

REACTIONS (3)
  - Off label use [Recovered/Resolved]
  - Vaccine breakthrough infection [Recovering/Resolving]
  - Meningococcal bacteraemia [Recovering/Resolving]

NARRATIVE: CASE EVENT DATE: 20180209
